FAERS Safety Report 9498400 (Version 2)
Quarter: 2013Q3

REPORT INFORMATION
  Report Type: Spontaneous
  Country: RS (occurrence: RS)
  Receive Date: 20130904
  Receipt Date: 20130910
  Transmission Date: 20140515
  Serious: Yes (Other)
  Sender: FDA-Public Use
  Company Number: RS-ACTAVIS-2013-15289

PATIENT
  Age: 50 Year
  Sex: Male

DRUGS (1)
  1. PANTOPRAZOLE SODIUM (UNKNOWN) [Suspect]
     Indication: GASTRITIS
     Dosage: 20 MG, UNKNOWN
     Route: 048

REACTIONS (2)
  - Renal pain [Unknown]
  - Dysuria [Unknown]
